FAERS Safety Report 24770973 (Version 1)
Quarter: 2024Q4

REPORT INFORMATION
  Report Type: Spontaneous
  Country: US (occurrence: None)
  Receive Date: 20241223
  Receipt Date: 20241223
  Transmission Date: 20250114
  Serious: Yes (Other)
  Sender: Public
  Company Number: None

PATIENT
  Age: 24 Year
  Sex: Male
  Weight: 78.75 kg

DRUGS (3)
  1. ZOLOFT [Suspect]
     Active Substance: SERTRALINE HYDROCHLORIDE
     Indication: Anger
     Dosage: OTHER QUANTITY : 1 TABLET(S);?FREQUENCY : EVERY 12 HOURS;?
     Route: 048
  2. MELATONIN [Concomitant]
     Active Substance: MELATONIN
  3. MIANSERIN [Concomitant]
     Active Substance: MIANSERIN

REACTIONS (3)
  - Genital hypoaesthesia [None]
  - Anhedonia [None]
  - Male orgasmic disorder [None]

NARRATIVE: CASE EVENT DATE: 20191207
